FAERS Safety Report 5366344-4 (Version None)
Quarter: 2007Q2

REPORT INFORMATION
  Report Type: 
  Country: None (occurrence: None)
  Receive Date: 20070622
  Receipt Date: 20070612
  Transmission Date: 20071010
  Serious: Yes (Hospitalization)
  Sender: FDA-Public Use
  Company Number: GB-JNJFOC-20070602849

PATIENT
  Age: 26 Year
  Sex: Female
  Weight: 94 kg

DRUGS (6)
  1. REMICADE [Suspect]
     Indication: CROHN'S DISEASE
     Route: 042
  2. AZATHIPRINE [Concomitant]
     Route: 048
  3. LANSOPRAZOLE [Concomitant]
  4. PARACETAMOL [Concomitant]
     Indication: PAIN
     Route: 048
  5. PREDNISOLONE [Concomitant]
     Indication: CROHN'S DISEASE
     Route: 048
  6. SENNA [Concomitant]
     Route: 048

REACTIONS (5)
  - COORDINATION ABNORMAL [None]
  - DIPLOPIA [None]
  - HEADACHE [None]
  - NYSTAGMUS [None]
  - RASH GENERALISED [None]
